FAERS Safety Report 5724750-X (Version None)
Quarter: 2008Q2

REPORT INFORMATION
  Report Type: 
  Country: None (occurrence: None)
  Receive Date: 20080501
  Receipt Date: 20080422
  Transmission Date: 20081010
  Serious: Yes (Hospitalization)
  Sender: FDA-Public Use
  Company Number: US-NOVOPROD-274491

PATIENT
  Sex: Female
  Weight: 113.5 kg

DRUGS (10)
  1. INSULIN DETEMIR FLEXPEN [Suspect]
     Indication: INSULIN-REQUIRING TYPE 2 DIABETES MELLITUS
     Dosage: 16 U, QD
     Route: 058
  2. GLUCOPHAGE [Concomitant]
     Indication: DIABETES MELLITUS
     Dosage: 2000 MG, QD
     Route: 048
     Dates: start: 20040101
  3. FLONASE [Concomitant]
     Indication: CHRONIC OBSTRUCTIVE PULMONARY DISEASE
     Dosage: 2 PUFF, QD
     Route: 045
     Dates: start: 20020101
  4. CELEBREX [Concomitant]
     Indication: ARTHRITIS
     Dosage: 200 MG, QD
     Route: 048
     Dates: start: 20040101
  5. FUROSEMIDE [Concomitant]
     Dosage: 40 MG, QD
     Route: 048
     Dates: start: 20020101
  6. ZANAFLEX [Concomitant]
     Indication: MUSCLE RELAXANT THERAPY
     Dosage: 8 MG, QD
     Route: 048
     Dates: start: 20070611
  7. LYRICA [Concomitant]
     Dosage: 300 MG, QD
     Route: 048
     Dates: start: 20070611
  8. GLIPIZIDE [Concomitant]
     Indication: DIABETES MELLITUS
     Dosage: 5 MG, QD
     Route: 048
     Dates: start: 20070611
  9. ALBUTEROL [Concomitant]
     Indication: CHRONIC OBSTRUCTIVE PULMONARY DISEASE
     Route: 055
     Dates: start: 20020101
  10. LASIX [Concomitant]
     Dosage: UNK, UNK
     Route: 048
     Dates: start: 20070301

REACTIONS (1)
  - PNEUMONIA [None]
